FAERS Safety Report 9539222 (Version 1)
Quarter: 2013Q2

REPORT INFORMATION
  Report Type: Spontaneous
  Country: US (occurrence: None)
  Receive Date: 20130517
  Receipt Date: 20130517
  Transmission Date: 20140414
  Serious: Yes (Other)
  Sender: FDA-Public Use
  Company Number: 1000043577

PATIENT
  Sex: Female

DRUGS (2)
  1. VIIBRYD (VILAZODONE HYDROCHLORIDE) (10 MILLIGRAM, TABLETS) [Suspect]
     Dosage: 10 MG (10 MG, 1 IN 1 D)
  2. VIIBRYD (VILAZODONE HYDROCHLORIDE) (40 MILLIGRAM, TABLETS) [Suspect]
     Dosage: 40 MG (40 MG, 1 IN 1 D)
     Dates: end: 20130315

REACTIONS (1)
  - Serotonin syndrome [None]
